FAERS Safety Report 21614691 (Version 1)
Quarter: 2022Q4

REPORT INFORMATION
  Report Type: Report from Study
  Country: ZA (occurrence: None)
  Receive Date: 20221118
  Receipt Date: 20221118
  Transmission Date: 20230113
  Serious: Yes (Death, Hospitalization)
  Sender: FDA-Public Use
  Company Number: 2022A381139

PATIENT
  Age: 52 Year
  Sex: Female

DRUGS (2)
  1. BUDESONIDE\FORMOTEROL [Suspect]
     Active Substance: BUDESONIDE\FORMOTEROL
     Indication: Asthma
     Dosage: 120 DOSE; 160 UG/INHAL; TWO TIMES A DAY160UG/INHAL TWO TIMES A DAY
     Route: 055
  2. INSULIN NOS [Suspect]
     Active Substance: INSULIN NOS
     Route: 065

REACTIONS (3)
  - Death [Fatal]
  - Feeling abnormal [Unknown]
  - Unevaluable event [Unknown]
